FAERS Safety Report 5822424-8 (Version None)
Quarter: 2008Q3

REPORT INFORMATION
  Report Type: 
  Country: None (occurrence: None)
  Receive Date: 20080725
  Receipt Date: 20080319
  Transmission Date: 20090109
  Serious: No
  Sender: FDA-Public Use
  Company Number: US-AMGEN-KDL270726

PATIENT
  Sex: Female
  Weight: 55.2 kg

DRUGS (9)
  1. PROCRIT [Suspect]
     Indication: DRUG USE FOR UNKNOWN INDICATION
     Dates: start: 20050101
  2. NORVASC [Concomitant]
  3. ALLOPURINOL [Concomitant]
  4. ADVIL [Concomitant]
  5. AGRYLIN [Concomitant]
  6. ASPIRIN [Concomitant]
  7. BENTYL [Concomitant]
  8. XANAX [Concomitant]
  9. UNSPECIFIED MEDICATION [Concomitant]

REACTIONS (2)
  - EPISTAXIS [None]
  - THROMBOSIS [None]
